FAERS Safety Report 20573604 (Version 1)
Quarter: 2022Q1

REPORT INFORMATION
  Report Type: Spontaneous
  Country: US (occurrence: None)
  Receive Date: 20220309
  Receipt Date: 20220309
  Transmission Date: 20220423
  Serious: Yes (Death)
  Sender: FDA-Public Use
  Company Number: None

PATIENT
  Age: 72 Year
  Sex: Female
  Weight: 54.9 kg

DRUGS (2)
  1. MYLOTARG [Suspect]
     Active Substance: GEMTUZUMAB OZOGAMICIN
     Indication: Acute myeloid leukaemia
     Dosage: OTHER FREQUENCY : ONCE EVERY 28 DAYS;?
     Route: 041
     Dates: start: 20220202, end: 20220302
  2. AZACITIDINE [Concomitant]
     Active Substance: AZACITIDINE
     Dates: start: 20210809, end: 20220302

REACTIONS (2)
  - Respiratory distress [None]
  - Respiratory arrest [None]

NARRATIVE: CASE EVENT DATE: 20220302
